FAERS Safety Report 7559807-4 (Version None)
Quarter: 2011Q2

REPORT INFORMATION
  Report Type: 
  Country: None (occurrence: None)
  Receive Date: 20110621
  Receipt Date: 20110608
  Transmission Date: 20111010
  Serious: Yes (Other)
  Sender: FDA-Public Use
  Company Number: DE-ROCHE-783338

PATIENT

DRUGS (1)
  1. CAPECITABINE [Suspect]
     Route: 048

REACTIONS (1)
  - CACHEXIA [None]
